FAERS Safety Report 7594270-9 (Version None)
Quarter: 2011Q3

REPORT INFORMATION
  Report Type: 
  Country: None (occurrence: None)
  Receive Date: 20110706
  Receipt Date: 20110207
  Transmission Date: 20111222
  Serious: Yes (Hospitalization)
  Sender: FDA-Public Use
  Company Number: BR-ASTRAZENECA-2010SE02796

PATIENT
  Age: 45 Year
  Sex: Female
  Weight: 87 kg

DRUGS (5)
  1. ATENOLOL [Suspect]
     Dosage: EMS / MEDLEY
     Route: 048
     Dates: end: 20080101
  2. ATACAND HCT [Suspect]
     Dosage: 16/12.5 MG
     Route: 048
     Dates: start: 20080101
  3. MODURETIC 5-50 [Concomitant]
     Route: 048
     Dates: start: 20070101, end: 20080101
  4. ATACAND [Suspect]
     Route: 048
     Dates: start: 20070101, end: 20080101
  5. ATENOLOL [Suspect]
     Dosage: EMS / MEDLEY
     Route: 048
     Dates: start: 20080101

REACTIONS (7)
  - BLOOD PRESSURE INADEQUATELY CONTROLLED [None]
  - UTERINE LEIOMYOMA [None]
  - HYPOTENSION [None]
  - FLUID RETENTION [None]
  - HYSTERECTOMY [None]
  - SWELLING [None]
  - SOMNOLENCE [None]
